FAERS Safety Report 19735864 (Version 3)
Quarter: 2022Q2

REPORT INFORMATION
  Report Type: Spontaneous
  Country: FR (occurrence: FR)
  Receive Date: 20210823
  Receipt Date: 20220428
  Transmission Date: 20220721
  Serious: Yes (Disabling, Other)
  Sender: FDA-Public Use
  Company Number: FR-SANOFI-00725564

PATIENT
  Age: 81 Year
  Sex: Female
  Weight: 46 kg

DRUGS (9)
  1. PLAVIX [Suspect]
     Active Substance: CLOPIDOGREL BISULFATE
     Indication: Pituitary tumour benign
     Dosage: 1 DF
     Route: 048
     Dates: start: 202001
  2. PLAVIX [Suspect]
     Active Substance: CLOPIDOGREL BISULFATE
     Indication: Vertebral artery stenosis
  3. PLAVIX [Suspect]
     Active Substance: CLOPIDOGREL BISULFATE
     Indication: Arteriosclerosis
  4. ASPIRIN [Suspect]
     Active Substance: ASPIRIN
     Dosage: TAKING 1 / D FOR ABOUT 2 YEARS
  5. LIPTRUZET [Suspect]
     Active Substance: ATORVASTATIN CALCIUM\EZETIMIBE
     Dosage: UNK
  6. TIMOLOL [Concomitant]
     Active Substance: TIMOLOL
     Dosage: UNK
  7. CLOPIDOGREL [Concomitant]
     Active Substance: CLOPIDOGREL BISULFATE
     Dosage: UNK
  8. ALDACTONE [Concomitant]
     Active Substance: SPIRONOLACTONE
     Indication: Hypertension
     Dosage: UNK
  9. TAHOR [Concomitant]
     Active Substance: ATORVASTATIN CALCIUM
     Indication: Blood cholesterol
     Dosage: UNK

REACTIONS (7)
  - Blindness unilateral [Not Recovered/Not Resolved]
  - Eye pain [Unknown]
  - Contusion [Unknown]
  - Haematoma [Not Recovered/Not Resolved]
  - Product availability issue [Unknown]
  - Diarrhoea [Unknown]
  - Pruritus [Unknown]
